FAERS Safety Report 8460676-9 (Version None)
Quarter: 2012Q2

REPORT INFORMATION
  Report Type: 
  Country: None (occurrence: None)
  Receive Date: 20120622
  Receipt Date: 20120619
  Transmission Date: 20120825
  Serious: Yes (Other)
  Sender: FDA-Public Use
  Company Number: PHHY2012AR053501

PATIENT
  Sex: Female

DRUGS (1)
  1. DIOVAN HCT [Suspect]
     Dosage: 1 DF (80/12.5 MG), DAILY
     Dates: start: 20120501

REACTIONS (3)
  - JOINT DISLOCATION [None]
  - PAIN IN EXTREMITY [None]
  - FALL [None]
